FAERS Safety Report 8451140-1 (Version None)
Quarter: 2012Q2

REPORT INFORMATION
  Report Type: 
  Country: None (occurrence: None)
  Receive Date: 20120613
  Receipt Date: 20120530
  Transmission Date: 20120825
  Serious: Yes (Other)
  Sender: FDA-Public Use
  Company Number: GB-1192540

PATIENT
  Age: 73 Year
  Sex: Male

DRUGS (1)
  1. MAXIDEX [Suspect]
     Indication: HYPHAEMA
     Dosage: (QID OPHTHALMIC)
     Route: 047

REACTIONS (5)
  - LENTICULAR OPACITIES [None]
  - VISUAL ACUITY REDUCED [None]
  - INTRAOCULAR PRESSURE INCREASED [None]
  - HYPHAEMA [None]
  - DISEASE RECURRENCE [None]
